FAERS Safety Report 20194251 (Version 2)
Quarter: 2021Q4

REPORT INFORMATION
  Report Type: Spontaneous
  Country: CH (occurrence: CH)
  Receive Date: 20211216
  Receipt Date: 20211222
  Transmission Date: 20220304
  Serious: Yes (Other)
  Sender: FDA-Public Use
  Company Number: None

PATIENT
  Age: 53 Year
  Sex: Female
  Weight: 95 kg

DRUGS (6)
  1. ISOPTIN [Suspect]
     Active Substance: VERAPAMIL HYDROCHLORIDE
     Indication: Cluster headache
     Dosage: 120 MILLIGRAM, QD (ISOPTIN RETARD (VERAPAMIL) TAKEN ORALLY FROM 07-DEC-2020 UNTIL FURTHER NOTICE)
     Route: 048
     Dates: start: 20201207
  2. ASPIRIN [Suspect]
     Active Substance: ASPIRIN
     Indication: Cardiovascular event prophylaxis
     Dosage: 100 MILLIGRAM, QD (100 MG PER DAY TAKEN ORALLY FOR YEARS UNTIL FURTHER NOTICE)
     Route: 048
  3. INCRUSE ELLIPTA [Concomitant]
     Active Substance: UMECLIDINIUM BROMIDE
     Indication: Chronic obstructive pulmonary disease
     Dosage: 55 MICROGRAM, QD (55 MCG/PUFF PER DAY, INHALED; FOR COPD)
     Route: 055
  4. OMEPRAZOLE [Concomitant]
     Active Substance: OMEPRAZOLE
     Indication: Gastrooesophageal reflux disease
     Dosage: 40 MILLIGRAM, QD ( (EXACT PREPARATION NOT KNOWN) 40 MG PER DAY, FOR GERD)
     Route: 048
  5. ROSUVASTATIN CALCIUM [Concomitant]
     Active Substance: ROSUVASTATIN CALCIUM
     Dosage: 10 MILLIGRAM, QD, CRESTASTATIN (ROSUVASTATIN) 10 MG /TAG
     Route: 048
  6. VALSARTAN [Concomitant]
     Active Substance: VALSARTAN
     Indication: Hypertension
     Dosage: 160 MILLIGRAM, QD, 160 MG /TAG, BEI ARTERIELLER HYPERTONIE
     Route: 048

REACTIONS (2)
  - Haematoma [Recovered/Resolved]
  - Off label use [Unknown]

NARRATIVE: CASE EVENT DATE: 20201207
